FAERS Safety Report 13347434 (Version 3)
Quarter: 2017Q4

REPORT INFORMATION
  Report Type: Spontaneous
  Country: DK (occurrence: DK)
  Receive Date: 20170317
  Receipt Date: 20171013
  Transmission Date: 20180320
  Serious: Yes (Life-Threatening, Hospitalization, Disabling)
  Sender: FDA-Public Use
  Company Number: DK-JNJFOC-20170316071

PATIENT
  Age: 33 Year
  Sex: Male
  Weight: 56 kg

DRUGS (6)
  1. BENEPALI [Concomitant]
     Active Substance: ETANERCEPT
     Route: 065
  2. STELARA [Suspect]
     Active Substance: USTEKINUMAB
     Indication: PSORIASIS
     Route: 058
     Dates: start: 20150518
  3. ENBREL [Suspect]
     Active Substance: ETANERCEPT
     Indication: PSORIASIS
     Route: 065
     Dates: start: 2015, end: 20151109
  4. ENBREL [Suspect]
     Active Substance: ETANERCEPT
     Indication: PSORIASIS
     Route: 065
     Dates: start: 20160408, end: 20160429
  5. HUMIRA [Suspect]
     Active Substance: ADALIMUMAB
     Indication: PSORIASIS
     Route: 065
     Dates: start: 20140101
  6. STELARA [Suspect]
     Active Substance: USTEKINUMAB
     Indication: PSORIASIS
     Route: 058
     Dates: start: 2014

REACTIONS (11)
  - Hypertonia [Unknown]
  - Paraparesis [Not Recovered/Not Resolved]
  - Demyelination [Not Recovered/Not Resolved]
  - Wheelchair user [Not Recovered/Not Resolved]
  - Anal incontinence [Not Recovered/Not Resolved]
  - Adverse drug reaction [Unknown]
  - Myelitis transverse [Recovering/Resolving]
  - Urinary incontinence [Not Recovered/Not Resolved]
  - Clonus [Unknown]
  - Hyperreflexia [Unknown]
  - Gait inability [Not Recovered/Not Resolved]

NARRATIVE: CASE EVENT DATE: 201508
